FAERS Safety Report 18203130 (Version 1)
Quarter: 2020Q3

REPORT INFORMATION
  Report Type: Spontaneous
  Country: BE (occurrence: BE)
  Receive Date: 20200827
  Receipt Date: 20200827
  Transmission Date: 20201103
  Serious: Yes (Hospitalization)
  Sender: FDA-Public Use
  Company Number: BE-MYLANLABS-2020M1074134

PATIENT
  Age: 82 Year
  Sex: Female

DRUGS (2)
  1. ACICLOVIR [Suspect]
     Active Substance: ACYCLOVIR
     Indication: HERPES ZOSTER MENINGOENCEPHALITIS
  2. ACICLOVIR [Suspect]
     Active Substance: ACYCLOVIR
     Indication: HERPES SIMPLEX ENCEPHALITIS
     Dosage: 800 MILLIGRAM, TID 3 TIMES A DAY
     Route: 042

REACTIONS (4)
  - Neurotoxicity [Recovering/Resolving]
  - Nephropathy toxic [Recovered/Resolved]
  - Psychomotor hyperactivity [Recovered/Resolved]
  - Speech disorder [Unknown]
